FAERS Safety Report 9010690 (Version 1)
Quarter: 2013Q1

REPORT INFORMATION
  Report Type: Spontaneous
  Country: US (occurrence: US)
  Receive Date: 20130109
  Receipt Date: 20130109
  Transmission Date: 20140127
  Serious: Yes (Death)
  Sender: FDA-Public Use
  Company Number: US-BAYER-2013-002479

PATIENT
  Age: 60 Year
  Sex: Male

DRUGS (11)
  1. DIPHENHYDRAMINE HYDROCHLORIDE [Suspect]
  2. PARACETAMOL + DIPHENHYDRAMINE [Suspect]
  3. NORTRIPTYLINE [Suspect]
  4. FEXOFENADINE [Suspect]
  5. SALICYLATES [Suspect]
  6. DRUG, UNKNOWN [Suspect]
  7. ATORVASTATIN [Suspect]
  8. CLOPIDOGREL [Suspect]
  9. METOPROLOL [Suspect]
  10. AMLODIPINE BESILATE W/ OLMESARTAN MEDOXOMIL [Suspect]
  11. DOXYLAMINE [Suspect]

REACTIONS (5)
  - Toxicity to various agents [Fatal]
  - Overdose [None]
  - Completed suicide [None]
  - Cardiac arrest [None]
  - Respiratory arrest [None]
